FAERS Safety Report 6260403-X (Version None)
Quarter: 2009Q3

REPORT INFORMATION
  Report Type: 
  Country: None (occurrence: None)
  Receive Date: 20090708
  Receipt Date: 20090706
  Transmission Date: 20100115
  Serious: Yes (Hospitalization, Disabling, Other)
  Sender: FDA-Public Use
  Company Number: US-MERCK-0905USA00170

PATIENT
  Age: 73 Year
  Sex: Female

DRUGS (3)
  1. FOSAMAX [Suspect]
     Indication: OSTEOPOROSIS
     Route: 048
     Dates: start: 19961101
  2. FOSAMAX [Suspect]
     Route: 048
     Dates: start: 20020101, end: 20060201
  3. FOSAMAX [Suspect]
     Route: 048
     Dates: start: 20060601, end: 20060901

REACTIONS (13)
  - ABSCESS [None]
  - ANXIETY [None]
  - DENTAL CARIES [None]
  - DEPRESSION [None]
  - EXOSTOSIS [None]
  - GINGIVITIS [None]
  - IMPAIRED HEALING [None]
  - JAW DISORDER [None]
  - ORAL INFECTION [None]
  - ORAL TORUS [None]
  - OSTEOMYELITIS [None]
  - OSTEONECROSIS [None]
  - SUICIDE ATTEMPT [None]
